FAERS Safety Report 9775363 (Version 3)
Quarter: 2014Q1

REPORT INFORMATION
  Report Type: Spontaneous
  Country: US (occurrence: US)
  Receive Date: 20131220
  Receipt Date: 20140318
  Transmission Date: 20141002
  Serious: No
  Sender: FDA-Public Use
  Company Number: US-GALDERMA-US13003277

PATIENT
  Age: 72 Year
  Sex: Female
  Weight: 55 kg

DRUGS (8)
  1. MIRVASO (BRIMONIDINE) TOPICAL GEL, 0.33% [Suspect]
     Indication: ROSACEA
     Route: 061
     Dates: start: 20131016, end: 20131017
  2. CARDIZEM (DILTIAZEM) [Concomitant]
     Indication: PALPITATIONS
     Dosage: 240 MG
     Route: 048
  3. SYNTHROID (LEVOTHYROXINE) [Concomitant]
     Indication: THYROID DISORDER
     Dosage: 50 MCG
     Route: 048
  4. SYNTHROID (LEVOTHYROXINE) [Concomitant]
     Indication: HYPOTHYROIDISM
  5. CALCIUM [Concomitant]
     Indication: BONE DISORDER
     Dosage: 670 MG
     Route: 048
  6. VITAMIN D [Concomitant]
     Indication: BONE DISORDER
     Dosage: 2000 UNITS
     Route: 048
  7. PRIVATE LABEL MILD CLEANSER [Concomitant]
     Indication: THERAPEUTIC SKIN CARE TOPICAL
     Route: 061
  8. PRIVATE LABEL TONER [Concomitant]
     Indication: THERAPEUTIC SKIN CARE TOPICAL
     Route: 061

REACTIONS (13)
  - Condition aggravated [Recovered/Resolved]
  - Palpitations [Recovered/Resolved]
  - Anxiety [Recovered/Resolved]
  - Feeling abnormal [Recovered/Resolved]
  - Rash macular [Recovered/Resolved]
  - Flushing [Recovered/Resolved]
  - Erythema [Recovered/Resolved]
  - Paraesthesia [Recovered/Resolved]
  - Skin burning sensation [Recovered/Resolved]
  - Skin warm [Recovered/Resolved]
  - Dry skin [Recovered/Resolved]
  - Acne [Recovered/Resolved]
  - Skin irritation [Recovered/Resolved]
